FAERS Safety Report 24163083 (Version 1)
Quarter: 2024Q3

REPORT INFORMATION
  Report Type: Report from Study
  Country: US (occurrence: US)
  Receive Date: 20240801
  Receipt Date: 20240801
  Transmission Date: 20241016
  Serious: Yes (Other)
  Sender: OTSUKA
  Company Number: US-OTSUKA-2024_021040

PATIENT
  Sex: Female

DRUGS (2)
  1. TOLVAPTAN [Suspect]
     Active Substance: TOLVAPTAN
     Indication: Congenital cystic kidney disease
     Dosage: 45 MG, QD (UPON WAKING)
     Route: 048
     Dates: start: 20240703
  2. TOLVAPTAN [Suspect]
     Active Substance: TOLVAPTAN
     Dosage: 15 MG, QD (8 H LATER)
     Route: 048
     Dates: start: 20240703

REACTIONS (4)
  - Renal impairment [Not Recovered/Not Resolved]
  - Polydipsia [Not Recovered/Not Resolved]
  - Thirst [Not Recovered/Not Resolved]
  - Polyuria [Not Recovered/Not Resolved]
